FAERS Safety Report 12745236 (Version 1)
Quarter: 2016Q3

REPORT INFORMATION
  Report Type: Spontaneous
  Country: US (occurrence: US)
  Receive Date: 20160915
  Receipt Date: 20160915
  Transmission Date: 20161109
  Serious: No
  Sender: FDA-Public Use
  Company Number: US-BAYER-2016-179142

PATIENT
  Age: 60 Year
  Sex: Female

DRUGS (1)
  1. MIRALAX [Suspect]
     Active Substance: POLYETHYLENE GLYCOL 3350
     Dosage: GOING TO MIX 238G OF MIRALAX WITH 64OZ OF LIQUID AND DRINK 8OZ EVERY 15 MINUTES .
     Route: 048

REACTIONS (1)
  - Circumstance or information capable of leading to medication error [None]
